FAERS Safety Report 7814062-2 (Version None)
Quarter: 2011Q4

REPORT INFORMATION
  Report Type: 
  Country: None (occurrence: None)
  Receive Date: 20111014
  Receipt Date: 20111005
  Transmission Date: 20120403
  Serious: Yes (Hospitalization)
  Sender: FDA-Public Use
  Company Number: GB-JNJFOC-20111002652

PATIENT
  Age: 5 Decade
  Sex: Male

DRUGS (3)
  1. LITHIUM [Concomitant]
     Indication: PRODUCT USED FOR UNKNOWN INDICATION
     Route: 065
  2. ANTIHISTAMINE [Concomitant]
     Indication: SEASONAL ALLERGY
     Route: 065
  3. RISPERDAL [Suspect]
     Indication: BIPOLAR DISORDER
     Route: 048

REACTIONS (3)
  - MANIA [None]
  - EUPHORIC MOOD [None]
  - ANTIDEPRESSANT DRUG LEVEL DECREASED [None]
